FAERS Safety Report 18346226 (Version 1)
Quarter: 2020Q4

REPORT INFORMATION
  Report Type: Spontaneous
  Country: US (occurrence: US)
  Receive Date: 20201005
  Receipt Date: 20201005
  Transmission Date: 20210114
  Serious: No
  Sender: FDA-Public Use
  Company Number: US-JAZZ-2020-US-010300

PATIENT
  Sex: Female

DRUGS (3)
  1. SUNOSI [Suspect]
     Active Substance: SOLRIAMFETOL
     Indication: PRODUCT USED FOR UNKNOWN INDICATION
     Dosage: UNK
  2. XYREM [Concomitant]
     Active Substance: SODIUM OXYBATE
  3. SUNOSI [Suspect]
     Active Substance: SOLRIAMFETOL
     Dosage: UNK

REACTIONS (3)
  - Lip swelling [Not Recovered/Not Resolved]
  - Wrong technique in product usage process [Unknown]
  - Pain [Unknown]
